FAERS Safety Report 13029842 (Version 1)
Quarter: 2016Q4

REPORT INFORMATION
  Report Type: Spontaneous
  Country: US (occurrence: US)
  Receive Date: 20161214
  Receipt Date: 20161214
  Transmission Date: 20170207
  Serious: Yes (Hospitalization, Disabling)
  Sender: FDA-Public Use
  Company Number: None

PATIENT
  Age: 36 Year
  Sex: Female
  Weight: 77.4 kg

DRUGS (1)
  1. LUPRON [Suspect]
     Active Substance: LEUPROLIDE ACETATE
     Indication: ENDOMETRIOSIS
     Dates: start: 20130101, end: 20130601

REACTIONS (11)
  - Depression [None]
  - Personality disorder [None]
  - Bone loss [None]
  - Influenza like illness [None]
  - Amnesia [None]
  - Hypotension [None]
  - Anxiety [None]
  - Hot flush [None]
  - Migraine [None]
  - Weight increased [None]
  - Chills [None]

NARRATIVE: CASE EVENT DATE: 20130101
